FAERS Safety Report 25940648 (Version 3)
Quarter: 2025Q4

REPORT INFORMATION
  Report Type: Spontaneous
  Country: EU (occurrence: EU)
  Receive Date: 20251020
  Receipt Date: 20251028
  Transmission Date: 20260118
  Serious: Yes (Other)
  Sender: REGENERON
  Company Number: EU-REGENERON PHARMACEUTICALS, INC.-2025-164991

PATIENT
  Age: 78 Year
  Sex: Male

DRUGS (1)
  1. LIBTAYO [Suspect]
     Active Substance: CEMIPLIMAB-RWLC
     Indication: Non-small cell lung cancer metastatic
     Dosage: UNK UNK, Q3W
     Dates: start: 20250714, end: 20250804

REACTIONS (4)
  - Asphyxia [Unknown]
  - Chest pain [Unknown]
  - Feeling hot [Unknown]
  - Hyperhidrosis [Unknown]
